FAERS Safety Report 11888521 (Version 2)
Quarter: 2016Q1

REPORT INFORMATION
  Report Type: Spontaneous
  Country: FR (occurrence: FR)
  Receive Date: 20160105
  Receipt Date: 20160202
  Transmission Date: 20160526
  Serious: Yes (Death, Other)
  Sender: FDA-Public Use
  Company Number: FR-TEVA-622942ISR

PATIENT
  Age: 4 Year
  Sex: Male
  Weight: 16 kg

DRUGS (3)
  1. ZITHROMAX [Suspect]
     Active Substance: AZITHROMYCIN DIHYDRATE
     Route: 065
  2. COLCHICINE. [Interacting]
     Active Substance: COLCHICINE
     Indication: PERICARDITIS
     Dosage: .5 MG/KG DAILY; 2 CONSECUTIVE DAYS 8 MG OF COLCHICINE
     Route: 065
  3. PARACETAMOL [Concomitant]
     Active Substance: ACETAMINOPHEN

REACTIONS (6)
  - Toxicity to various agents [Unknown]
  - Drug interaction [Unknown]
  - Multiple organ dysfunction syndrome [Fatal]
  - Diarrhoea [Unknown]
  - Accidental overdose [Unknown]
  - Vomiting [Unknown]
